FAERS Safety Report 7829447-8 (Version None)
Quarter: 2011Q4

REPORT INFORMATION
  Report Type: 
  Country: None (occurrence: None)
  Receive Date: 20111020
  Receipt Date: 20111011
  Transmission Date: 20120403
  Serious: Yes (Hospitalization)
  Sender: FDA-Public Use
  Company Number: JP-ASTRAZENECA-2011SE15609

PATIENT
  Age: 27112 Day
  Sex: Female
  Weight: 72 kg

DRUGS (17)
  1. CHOLESTEROL LOWERING DRUG [Concomitant]
     Route: 065
  2. CANDESARTAN CILEXETIL [Suspect]
     Indication: HYPERTENSION
     Route: 048
     Dates: start: 20090420, end: 20091129
  3. BETA BLOCKING AGENTS [Concomitant]
     Route: 065
  4. NSAID'S [Concomitant]
     Route: 065
  5. STATINS [Concomitant]
     Route: 065
  6. TORSEMIDE [Concomitant]
     Route: 065
     Dates: start: 20100518
  7. METOPROLOL SUCCINATE [Concomitant]
     Indication: HYPERTENSION
     Route: 048
     Dates: start: 20091128
  8. CALCIUM ANTAGONIST [Concomitant]
     Route: 065
     Dates: end: 20091127
  9. DIURETICS [Concomitant]
     Route: 065
  10. NITRENDIPINE [Suspect]
     Indication: HYPERTENSION
     Route: 048
     Dates: start: 20090520, end: 20091127
  11. MOXONIDINE [Concomitant]
     Route: 065
     Dates: start: 20100518
  12. AMLODIPINE [Concomitant]
     Route: 065
     Dates: start: 20100518
  13. PLAVIX [Concomitant]
     Indication: CAROTID ARTERY STENOSIS
     Route: 048
     Dates: start: 20040616
  14. PANTOPRAZOLE SODIUM [Concomitant]
     Indication: GASTRITIS
     Route: 048
     Dates: start: 20070220
  15. DOXAZOSIN MESYLATE [Concomitant]
     Indication: HYPERTENSION
     Route: 048
     Dates: start: 20091128
  16. HYDROCHLOROTHIAZIDE [Suspect]
     Indication: HYPERTENSION
     Route: 048
     Dates: start: 20091128
  17. RASILEZ [Suspect]
     Indication: HYPERTENSION
     Route: 048
     Dates: start: 20081119, end: 20090122

REACTIONS (4)
  - ECG SIGNS OF VENTRICULAR HYPERTROPHY [None]
  - DYSPNOEA [None]
  - ANGINA PECTORIS [None]
  - HYPERTENSIVE CRISIS [None]
